FAERS Safety Report 10078127 (Version 1)
Quarter: 2014Q2

REPORT INFORMATION
  Report Type: Spontaneous
  Country: US (occurrence: US)
  Receive Date: 20140415
  Receipt Date: 20140415
  Transmission Date: 20141212
  Serious: No
  Sender: FDA-Public Use
  Company Number: US-BIOGENIDEC-2014BI035575

PATIENT
  Sex: Female

DRUGS (1)
  1. TYSABRI [Suspect]
     Indication: MULTIPLE SCLEROSIS
     Route: 042
     Dates: start: 20131108

REACTIONS (8)
  - Temperature intolerance [Unknown]
  - Balance disorder [Unknown]
  - Frustration [Unknown]
  - Depressed mood [Unknown]
  - Back disorder [Unknown]
  - Pain in extremity [Unknown]
  - Fall [Recovered/Resolved]
  - Fatigue [Unknown]
